FAERS Safety Report 24168271 (Version 2)
Quarter: 2024Q3

REPORT INFORMATION
  Report Type: Spontaneous
  Country: US (occurrence: US)
  Receive Date: 20240802
  Receipt Date: 20240904
  Transmission Date: 20241016
  Serious: No
  Sender: BRISTOL MYERS SQUIBB
  Company Number: US-BRISTOL-MYERS SQUIBB COMPANY-2024-122437

PATIENT
  Age: 81 Year
  Sex: Female
  Weight: 43.54 kg

DRUGS (1)
  1. POMALYST [Suspect]
     Active Substance: POMALIDOMIDE
     Indication: Plasma cell myeloma
     Route: 048
     Dates: start: 20240301

REACTIONS (5)
  - Constipation [Recovering/Resolving]
  - Dizziness [Recovering/Resolving]
  - Abdominal distension [Recovering/Resolving]
  - Asthenia [Recovering/Resolving]
  - Haemorrhoids [Recovering/Resolving]
